FAERS Safety Report 8229000-0 (Version None)
Quarter: 2012Q1

REPORT INFORMATION
  Report Type: 
  Country: None (occurrence: None)
  Receive Date: 20120322
  Receipt Date: 20120308
  Transmission Date: 20120608
  Serious: Yes (Other)
  Sender: FDA-Public Use
  Company Number: JP-ROCHE-1002809

PATIENT
  Sex: Male
  Weight: 54 kg

DRUGS (11)
  1. MIRCERA [Suspect]
     Indication: NEPHROGENIC ANAEMIA
     Route: 042
     Dates: start: 20110823, end: 20110823
  2. ASPIRIN [Concomitant]
     Route: 048
  3. GLUFAST [Concomitant]
     Route: 048
  4. PURSENNID [Concomitant]
     Indication: CONSTIPATION
     Dosage: SINGLE USE
     Route: 048
  5. ROCALTROL [Concomitant]
     Route: 048
  6. BASEN [Concomitant]
     Route: 048
  7. ALOSENN [Concomitant]
     Indication: CONSTIPATION
     Dosage: SINGLE USE
     Route: 048
  8. MIRCERA [Suspect]
     Route: 042
     Dates: start: 20110920, end: 20110920
  9. DIART [Concomitant]
     Route: 048
  10. MARZULENE-S [Concomitant]
     Route: 048
  11. PROTECADIN [Concomitant]
     Route: 048

REACTIONS (1)
  - ANAEMIA [None]
